FAERS Safety Report 6815791-X (Version None)
Quarter: 2010Q3

REPORT INFORMATION
  Report Type: 
  Country: None (occurrence: None)
  Receive Date: 20100705
  Receipt Date: 20100623
  Transmission Date: 20110219
  Serious: Yes (Hospitalization)
  Sender: FDA-Public Use
  Company Number: JP-MERCK-1006USA04202

PATIENT
  Age: 75 Year
  Sex: Male

DRUGS (2)
  1. JANUVIA [Suspect]
     Indication: DIABETES MELLITUS
     Route: 048
     Dates: start: 20100101
  2. METFORMIN HCL [Concomitant]
     Route: 048

REACTIONS (1)
  - ILEUS [None]
